FAERS Safety Report 13275101 (Version 2)
Quarter: 2017Q1

REPORT INFORMATION
  Report Type: Spontaneous
  Country: US (occurrence: US)
  Receive Date: 20170227
  Receipt Date: 20170302
  Transmission Date: 20170428
  Serious: No
  Sender: FDA-Public Use
  Company Number: US-ELI_LILLY_AND_COMPANY-US201702006742

PATIENT
  Age: 63 Year
  Sex: Male

DRUGS (5)
  1. TRULICITY [Suspect]
     Active Substance: DULAGLUTIDE
     Dosage: 1.5 MG, WEEKLY (1/W)
     Route: 065
  2. TRULICITY [Suspect]
     Active Substance: DULAGLUTIDE
     Dosage: 1.5 MG, WEEKLY (1/W)
     Route: 065
     Dates: start: 20160814
  3. METFORMIN [Concomitant]
     Active Substance: METFORMIN HYDROCHLORIDE
     Dosage: 1 DF, QD
     Route: 065
  4. TRULICITY [Suspect]
     Active Substance: DULAGLUTIDE
     Indication: TYPE 2 DIABETES MELLITUS
     Dosage: 1.5 MG, WEEKLY (1/W)
     Route: 065
     Dates: start: 201608
  5. LANTUS [Concomitant]
     Active Substance: INSULIN GLARGINE
     Dosage: 45 U, QD
     Route: 065

REACTIONS (10)
  - Blood glucose increased [Unknown]
  - Injection site swelling [Unknown]
  - Incorrect dose administered [Unknown]
  - Injury associated with device [Unknown]
  - Nervousness [Unknown]
  - Drug dose omission [Unknown]
  - Drug effect decreased [Unknown]
  - Hypersensitivity [Unknown]
  - Blood glucose increased [Unknown]
  - Injection site pain [Unknown]

NARRATIVE: CASE EVENT DATE: 201608
